FAERS Safety Report 8383545 (Version 3)
Quarter: 2012Q4

REPORT INFORMATION
  Report Type: 
  Country: JP (occurrence: JP)
  Receive Date: 20120130
  Receipt Date: 20121210
  Transmission Date: 20130627
  Serious: Yes (Hospitalization)
  Sender: FDA-Public Use
  Company Number: JP-TEVA-2011006351

PATIENT
  Age: 77 Year
  Sex: Male

DRUGS (16)
  1. BENDAMUSTINE [Suspect]
     Indication: MANTLE CELL LYMPHOMA
     Route: 042
     Dates: start: 20111006, end: 20111007
  2. BENDAMUSTINE [Suspect]
     Route: 042
     Dates: start: 20111212, end: 20111213
  3. BENDAMUSTINE [Suspect]
     Route: 042
     Dates: start: 20111107, end: 20111108
  4. RITUXIMAB [Concomitant]
     Dates: start: 20111005, end: 20111209
  5. TAMSULOSIN HYDROCHLORIDE [Concomitant]
  6. SULFAMETOXAZOL MED TRIMETOPRIM [Concomitant]
     Dates: start: 20111118
  7. MAGNESIUM OXIDE [Concomitant]
     Dates: start: 20111118
  8. REBAMIPIDE [Concomitant]
     Dates: start: 20111118
  9. FAMOTIDINE [Concomitant]
     Dates: start: 20111118
  10. PREDNISOLONE [Concomitant]
     Dates: start: 20111118
  11. SOLIFENACIN SUCCINATE [Concomitant]
     Dates: start: 20111118
  12. RISEDRONATE SODIUM [Concomitant]
     Dates: start: 20111118
  13. LEVODOPA BENSERAZIDE HYDROCHLO [Concomitant]
     Dates: start: 20111214
  14. ZONISAMIDE [Concomitant]
     Dates: start: 20111118
  15. FUROSEMIDE [Concomitant]
     Dates: start: 20111214
  16. DIPHENHYDRAMINE [Concomitant]
     Dates: start: 20111208

REACTIONS (3)
  - Ileus [Unknown]
  - Pneumonia aspiration [Unknown]
  - Constipation [Recovered/Resolved]
